FAERS Safety Report 13107091 (Version 1)
Quarter: 2017Q1

REPORT INFORMATION
  Report Type: Spontaneous
  Country: US (occurrence: US)
  Receive Date: 20170111
  Receipt Date: 20170111
  Transmission Date: 20170428
  Serious: No
  Sender: FDA-Public Use
  Company Number: US-BIOGEN-2017BI00339852

PATIENT
  Sex: Female

DRUGS (1)
  1. AVONEX [Suspect]
     Active Substance: INTERFERON BETA-1A
     Indication: MULTIPLE SCLEROSIS
     Route: 030
     Dates: start: 20161215

REACTIONS (16)
  - Increased upper airway secretion [Unknown]
  - Dry skin [Unknown]
  - Pain in extremity [Unknown]
  - Skin discolouration [Unknown]
  - Peripheral swelling [Unknown]
  - Acne [Unknown]
  - Vaginal discharge [Unknown]
  - Pruritus [Unknown]
  - Sinusitis [Unknown]
  - Hair texture abnormal [Unknown]
  - Skin depigmentation [Unknown]
  - Fall [Recovered/Resolved]
  - Paraesthesia [Unknown]
  - Visual impairment [Unknown]
  - Weight decreased [Unknown]
  - Choking [Unknown]
